FAERS Safety Report 16028192 (Version 1)
Quarter: 2019Q1

REPORT INFORMATION
  Report Type: Report from Study
  Country: ES (occurrence: ES)
  Receive Date: 20190304
  Receipt Date: 20190304
  Transmission Date: 20190418
  Serious: Yes (Life-Threatening, Hospitalization)
  Sender: FDA-Public Use
  Company Number: ES-ZYDUS-034307

PATIENT
  Age: 76 Year
  Sex: Male

DRUGS (5)
  1. CARVEDILOL/CARVEDILOL HYDROCHLODRIDE [Suspect]
     Active Substance: CARVEDILOL HYDROCHLORIDE
     Indication: PRODUCT USED FOR UNKNOWN INDICATION
     Route: 048
     Dates: start: 201209
  2. ACENOCOUMAROL [Interacting]
     Active Substance: ACENOCOUMAROL
     Indication: DEEP VEIN THROMBOSIS
     Dosage: 1 MG COMPRESSED, 60 TABLETS
     Route: 048
     Dates: start: 200708, end: 20161115
  3. METFORMIN [Concomitant]
     Active Substance: METFORMIN HYDROCHLORIDE
     Indication: DIABETES MELLITUS
     Dosage: DOSAGE UNIT FREQUENCY: 1.7 MG-MILLIGRAMS
     Route: 048
     Dates: start: 2010
  4. TAMSULOSIN [Concomitant]
     Active Substance: TAMSULOSIN
     Indication: BENIGN PROSTATIC HYPERPLASIA
     Dosage: DOSAGE UNIT FREQUENCY: 0.4 MG-MILLIGRAMS
     Route: 048
     Dates: start: 201207
  5. PRAVASTATIN. [Interacting]
     Active Substance: PRAVASTATIN
     Indication: HYPERLIPIDAEMIA
     Dosage: DOSAGE UNIT FREQUENCY: 10 MG-MILLIGRAMS, DOSAGE PER DOSE: 10 MG-MILLIGRAMS
     Route: 048
     Dates: start: 2010, end: 20161115

REACTIONS (1)
  - Haemorrhage intracranial [Recovering/Resolving]

NARRATIVE: CASE EVENT DATE: 20161115
